FAERS Safety Report 9334268 (Version 1)
Quarter: 2013Q2

REPORT INFORMATION
  Report Type: Spontaneous
  Country: US (occurrence: US)
  Receive Date: 20130606
  Receipt Date: 20130606
  Transmission Date: 20140414
  Serious: No
  Sender: FDA-Public Use
  Company Number: US-AMGEN-USASP2013021974

PATIENT
  Age: 81 Year
  Sex: Female

DRUGS (13)
  1. PROLIA [Suspect]
     Indication: OSTEOPOROSIS POSTMENOPAUSAL
     Dosage: UNK
     Dates: start: 20121102
  2. ANTIHYPERTENSIVES [Concomitant]
  3. THYROID THERAPY [Concomitant]
  4. PROBIOTIC                          /06395501/ [Concomitant]
  5. CALCIUM [Concomitant]
  6. MAALOX                             /00082501/ [Concomitant]
  7. PRILOSEC                           /00661201/ [Concomitant]
  8. PLAQUENIL                          /00072602/ [Concomitant]
  9. MOBIC [Concomitant]
  10. CLARITIN                           /00413701/ [Concomitant]
  11. PLAQUENIL                          /00072602/ [Concomitant]
  12. FLONASE [Concomitant]
  13. ANTIFUNGALS FOR TOPICAL USE [Concomitant]

REACTIONS (5)
  - Alopecia [Not Recovered/Not Resolved]
  - Onychoclasis [Not Recovered/Not Resolved]
  - Muscle spasms [Not Recovered/Not Resolved]
  - Fungal infection [Not Recovered/Not Resolved]
  - Eczema [Not Recovered/Not Resolved]
